FAERS Safety Report 9429520 (Version 1)
Quarter: 2013Q3

REPORT INFORMATION
  Report Type: Spontaneous
  Country: US (occurrence: US)
  Receive Date: 20130730
  Receipt Date: 20130730
  Transmission Date: 20140515
  Serious: Yes (Other)
  Sender: FDA-Public Use
  Company Number: US-TEVA-414450USA

PATIENT
  Age: 41 Year
  Sex: Female
  Weight: 65.38 kg

DRUGS (3)
  1. PARAGARD 380A [Suspect]
     Indication: CONTRACEPTION
     Route: 015
     Dates: start: 20070102, end: 20130613
  2. ACYCLOVIR [Concomitant]
     Indication: HERPES VIRUS INFECTION
  3. ACYCLOVIR [Concomitant]
     Indication: PROPHYLAXIS

REACTIONS (1)
  - Medical device complication [Not Recovered/Not Resolved]
